FAERS Safety Report 7392475-3 (Version None)
Quarter: 2011Q2

REPORT INFORMATION
  Report Type: 
  Country: None (occurrence: None)
  Receive Date: 20110404
  Receipt Date: 20101129
  Transmission Date: 20111010
  Serious: Yes (Death, Other)
  Sender: FDA-Public Use
  Company Number: GB-BAYER-201036254GPV

PATIENT
  Sex: Female
  Weight: 60 kg

DRUGS (7)
  1. LOPERAMIDE [Concomitant]
     Indication: DIARRHOEA
     Dosage: 2 MG (DAILY DOSE), PRN,
  2. SORAFENIB (RAF KINASE INHIBITOR) [Suspect]
     Indication: SALIVARY GLAND CANCER
     Dosage: TOTAL WEEKLY DOSE: 4200MG
     Route: 048
     Dates: start: 20100415, end: 20100806
  3. MAXOLON [Concomitant]
     Indication: NAUSEA
     Dosage: 30 MG (DAILY DOSE), ,
     Dates: start: 20100727, end: 20100806
  4. ACETAMINOPHEN AND CODEINE PHOSPHATE [Concomitant]
     Indication: PAIN
     Dosage: 15/500
  5. PYRIDOXINE [Concomitant]
     Route: 048
     Dates: start: 20100304
  6. DOMPERIDONE [Concomitant]
     Indication: NAUSEA
     Dosage: 30 MG (DAILY DOSE), ,
     Dates: start: 20100806
  7. OMEPRAZOLE [Concomitant]
     Indication: SALIVARY GLAND CANCER
     Dosage: 20 MG (DAILY DOSE), ,
     Dates: start: 20100809

REACTIONS (5)
  - ABDOMINAL PAIN UPPER [None]
  - NAUSEA [None]
  - CHROMATURIA [None]
  - HEPATIC FUNCTION ABNORMAL [None]
  - JAUNDICE [None]
